FAERS Safety Report 21943880 (Version 3)
Quarter: 2023Q4

REPORT INFORMATION
  Report Type: Report from Study
  Country: CA (occurrence: None)
  Receive Date: 20230202
  Receipt Date: 20231019
  Transmission Date: 20240110
  Serious: Yes (Hospitalization, Other)
  Sender: FDA-Public Use
  Company Number: CA-PFIZER INC-202300045510

PATIENT
  Age: 76 Year
  Sex: Female

DRUGS (15)
  1. METHOTREXATE [Suspect]
     Active Substance: METHOTREXATE
     Indication: Product used for unknown indication
  2. METHOTREXATE [Suspect]
     Active Substance: METHOTREXATE
  3. ERELZI [Suspect]
     Active Substance: ETANERCEPT-SZZS
     Indication: Ankylosing spondylitis
  4. ERELZI [Suspect]
     Active Substance: ETANERCEPT-SZZS
  5. ERELZI [Suspect]
     Active Substance: ETANERCEPT-SZZS
  6. ERELZI [Suspect]
     Active Substance: ETANERCEPT-SZZS
  7. ERELZI [Suspect]
     Active Substance: ETANERCEPT-SZZS
  8. ERELZI [Suspect]
     Active Substance: ETANERCEPT-SZZS
  9. ERELZI [Suspect]
     Active Substance: ETANERCEPT-SZZS
  10. ERELZI [Suspect]
     Active Substance: ETANERCEPT-SZZS
  11. CELEBREX [Concomitant]
     Active Substance: CELECOXIB
  12. FOLIC ACID [Concomitant]
     Active Substance: FOLIC ACID
  13. NAPROXEN [Concomitant]
     Active Substance: NAPROXEN
  14. SULFASALAZINE [Concomitant]
     Active Substance: SULFASALAZINE
  15. PREDNISONE [Concomitant]
     Active Substance: PREDNISONE

REACTIONS (9)
  - Drug ineffective [Unknown]
  - Contusion [Unknown]
  - Dizziness postural [Unknown]
  - Cardiac disorder [Unknown]
  - Coma [Unknown]
  - Herpes zoster [Unknown]
  - Memory impairment [Unknown]
  - Pneumonia [Unknown]
  - Weight decreased [Unknown]
